FAERS Safety Report 16811665 (Version 1)
Quarter: 2019Q3

REPORT INFORMATION
  Report Type: Spontaneous
  Country: TR (occurrence: TR)
  Receive Date: 20190916
  Receipt Date: 20190916
  Transmission Date: 20191005
  Serious: Yes (Other)
  Sender: FDA-Public Use
  Company Number: TR-AMERICAN REGENT INC-2019001993

PATIENT

DRUGS (1)
  1. FERINJECT [Suspect]
     Active Substance: FERRIC CARBOXYMALTOSE
     Indication: PRODUCT USED FOR UNKNOWN INDICATION
     Dosage: 20 DOSES OF FERINJECT AT TWO WEEK INTERVAL
     Route: 042

REACTIONS (3)
  - Product use in unapproved therapeutic environment [Unknown]
  - Serum ferritin increased [Unknown]
  - Phlebotomy [Unknown]

NARRATIVE: CASE EVENT DATE: 2019
